FAERS Safety Report 17672027 (Version 1)
Quarter: 2020Q2

REPORT INFORMATION
  Report Type: Spontaneous
  Country: CO (occurrence: CO)
  Receive Date: 20200415
  Receipt Date: 20200415
  Transmission Date: 20200713
  Serious: Yes (Hospitalization, Other)
  Sender: FDA-Public Use
  Company Number: CO-VIIV HEALTHCARE LIMITED-CO2020GSK060636

PATIENT
  Age: 30 Year
  Sex: Male

DRUGS (6)
  1. EFAVIRENZ. [Suspect]
     Active Substance: EFAVIRENZ
     Indication: HIV INFECTION
     Dosage: UNK
     Dates: end: 20150330
  2. METHYLENE BLUE. [Concomitant]
     Active Substance: METHYLENE BLUE
     Indication: ULCER
     Dosage: UNK
  3. LAMIVUDINE AND ZIDOVUDINE [Suspect]
     Active Substance: LAMIVUDINE\ZIDOVUDINE
     Indication: HIV INFECTION
     Dosage: UNK
     Dates: end: 20150330
  4. ALCOHOL. [Concomitant]
     Active Substance: ALCOHOL
     Indication: ULCER
     Dosage: UNK
  5. ACYCLOVIR. [Concomitant]
     Active Substance: ACYCLOVIR
     Indication: HERPES VIRUS INFECTION
     Dosage: UNK
  6. TRIMETHOPRIM + SULFAMETHOXAZOL [Concomitant]
     Active Substance: SULFAMERAZINE SODIUM\TRIMETHOPRIM
     Indication: OPPORTUNISTIC INFECTION PROPHYLAXIS
     Dosage: UNK

REACTIONS (14)
  - General physical health deterioration [Recovered/Resolved]
  - Condition aggravated [Recovered/Resolved with Sequelae]
  - Treatment noncompliance [Unknown]
  - Tachycardia [Recovered/Resolved]
  - Pathogen resistance [Unknown]
  - Skin lesion [Recovered/Resolved with Sequelae]
  - Progressive vaccinia [Recovered/Resolved with Sequelae]
  - Pyrexia [Recovered/Resolved]
  - Skin ulcer [Recovered/Resolved with Sequelae]
  - Hypoacusis [Recovered/Resolved]
  - Visual impairment [Recovered/Resolved]
  - Leukopenia [Recovered/Resolved]
  - Virologic failure [Unknown]
  - Anaemia [Recovered/Resolved]

NARRATIVE: CASE EVENT DATE: 2014
